FAERS Safety Report 6855949-7 (Version None)
Quarter: 2010Q3

REPORT INFORMATION
  Report Type: 
  Country: None (occurrence: None)
  Receive Date: 20100716
  Receipt Date: 20100716
  Transmission Date: 20110219
  Serious: Yes (Hospitalization)
  Sender: FDA-Public Use
  Company Number: None

PATIENT
  Age: 62 Year
  Sex: Female
  Weight: 84.1 kg

DRUGS (5)
  1. DASATIMIB [Suspect]
     Indication: LUNG NEOPLASM MALIGNANT
     Dosage: 70MG BID PO
     Route: 048
     Dates: start: 20100701, end: 20100712
  2. LEXAPRO [Concomitant]
  3. ZOLPIDEM [Concomitant]
  4. PRAVASTATIN [Concomitant]
  5. KLORCOR [Concomitant]

REACTIONS (2)
  - DYSPNOEA [None]
  - FATIGUE [None]
